FAERS Safety Report 11905113 (Version 6)
Quarter: 2020Q1

REPORT INFORMATION
  Report Type: Spontaneous
  Country: US (occurrence: US)
  Receive Date: 20160109
  Receipt Date: 20200122
  Transmission Date: 20200409
  Serious: Yes (Other)
  Sender: FDA-Public Use
  Company Number: US-JNJFOC-20151222909

PATIENT
  Sex: Male

DRUGS (1)
  1. RISPERDAL [Suspect]
     Active Substance: RISPERIDONE
     Indication: BEHAVIOUR DISORDER
     Route: 048
     Dates: start: 200512, end: 200605

REACTIONS (3)
  - Gynaecomastia [Recovering/Resolving]
  - Hyperprolactinaemia [Unknown]
  - Therapy cessation [Unknown]

NARRATIVE: CASE EVENT DATE: 2006
